FAERS Safety Report 6493898-7 (Version None)
Quarter: 2009Q4

REPORT INFORMATION
  Report Type: 
  Country: None (occurrence: None)
  Receive Date: 20091214
  Receipt Date: 20081119
  Transmission Date: 20100525
  Serious: Yes (Death)
  Sender: FDA-Public Use
  Company Number: US-BRISTOL-MYERS SQUIBB COMPANY-14412373

PATIENT
  Age: 48 Year
  Sex: Male
  Weight: 95 kg

DRUGS (1)
  1. ABILIFY [Suspect]

REACTIONS (4)
  - COMPLETED SUICIDE [None]
  - DECREASED APPETITE [None]
  - PARANOIA [None]
  - PSYCHOMOTOR HYPERACTIVITY [None]
